FAERS Safety Report 4874966-X (Version None)
Quarter: 2006Q1

REPORT INFORMATION
  Report Type: 
  Country: None (occurrence: None)
  Receive Date: 20060104
  Receipt Date: 20051221
  Transmission Date: 20060701
  Serious: Yes (Other)
  Sender: FDA-Public Use
  Company Number: 2005165350

PATIENT
  Age: 64 Year
  Sex: Female
  Weight: 68 kg

DRUGS (6)
  1. LYRICA [Suspect]
     Indication: ILL-DEFINED DISORDER
     Dosage: 75 MG (75 MG, 1 IN 1 D), ORAL
     Route: 048
     Dates: start: 20051027, end: 20051104
  2. MELOXICAM (MELOXICAM) [Concomitant]
  3. MICARDIS [Concomitant]
  4. DIUREX (AMILORIDE HYDROCHLORIDE, HYDROCHLOROTHIAZIDE) [Concomitant]
  5. SELECTOL (CELIPROLOL HYDROCHLORIDE) [Concomitant]
  6. PROGYNOVA (ESTRADIOL VALERATE) [Concomitant]

REACTIONS (2)
  - SEBACEOUS NAEVUS [None]
  - TEMPORAL ARTERITIS [None]
